FAERS Safety Report 16828377 (Version 1)
Quarter: 2019Q4

REPORT INFORMATION
  Report Type: Spontaneous
  Country: US (occurrence: US)
  Receive Date: 20190919
  Receipt Date: 20190919
  Transmission Date: 20200122
  Serious: No
  Sender: FDA-Public Use
  Company Number: None

PATIENT
  Sex: Male

DRUGS (1)
  1. LOZENGES, 2 MG (NICOTINE) [Suspect]
     Active Substance: NICOTINE

REACTIONS (1)
  - Drug ineffective [None]
